FAERS Safety Report 7756723-X (Version None)
Quarter: 2011Q3

REPORT INFORMATION
  Report Type: 
  Country: None (occurrence: None)
  Receive Date: 20110916
  Receipt Date: 20110824
  Transmission Date: 20111222
  Serious: Yes (Hospitalization, Other)
  Sender: FDA-Public Use
  Company Number: FR-PFIZER INC-2009163705

PATIENT
  Age: 11 Month
  Sex: Male

DRUGS (5)
  1. HYDROCORTISONE [Suspect]
     Indication: ECZEMA
     Route: 061
  2. BETAMETHASONE BENZOATE [Suspect]
     Indication: ECZEMA
     Route: 061
  3. DESONIDE [Suspect]
     Indication: ECZEMA
     Route: 061
  4. CLOBETASOL PROPIONATE [Suspect]
     Indication: ECZEMA
     Route: 061
  5. MOMETASONE FUROATE [Suspect]
     Indication: ECZEMA
     Route: 061

REACTIONS (2)
  - MEDICATION ERROR [None]
  - CUSHING'S SYNDROME [None]
